FAERS Safety Report 9677417 (Version 2)
Quarter: 2013Q4

REPORT INFORMATION
  Report Type: Spontaneous
  Country: BR (occurrence: BR)
  Receive Date: 20131108
  Receipt Date: 20131108
  Transmission Date: 20140711
  Serious: Yes (Other)
  Sender: FDA-Public Use
  Company Number: BR-JNJFOC-20130902805

PATIENT
  Age: 18 Year
  Sex: Male

DRUGS (4)
  1. REMICADE [Suspect]
     Indication: COLITIS
     Route: 042
     Dates: start: 20130828
  2. REMICADE [Suspect]
     Indication: COLITIS
     Route: 042
     Dates: start: 2012
  3. MESALAMINE [Concomitant]
     Route: 065
  4. URSACOL [Concomitant]
     Indication: LIVER DISORDER
     Route: 065

REACTIONS (2)
  - Crohn^s disease [Unknown]
  - Inappropriate schedule of drug administration [Not Recovered/Not Resolved]
